FAERS Safety Report 7276312-3 (Version None)
Quarter: 2011Q1

REPORT INFORMATION
  Report Type: 
  Country: None (occurrence: None)
  Receive Date: 20110204
  Receipt Date: 20110118
  Transmission Date: 20110831
  Serious: No
  Sender: FDA-Public Use
  Company Number: US-B.I. PHARMACEUTICALS,INC./RIDGEFIELD-2011-BP-01922BP

PATIENT
  Sex: Female

DRUGS (8)
  1. SPIRIVA [Suspect]
     Indication: CHRONIC OBSTRUCTIVE PULMONARY DISEASE
     Dosage: 18 MCG
     Route: 055
     Dates: start: 20110112
  2. AMLODIPINE [Concomitant]
     Indication: HYPERTENSION
     Dosage: 5 MG
     Route: 048
  3. SOY PILL [Concomitant]
     Indication: PROPHYLAXIS
     Route: 048
  4. INDERAL [Concomitant]
     Indication: TACHYCARDIA
     Dosage: 160 MG
     Route: 048
  5. CALCIUM/VITAMIN D [Concomitant]
     Indication: PROPHYLAXIS
     Route: 048
  6. TRAMADOL [Concomitant]
     Indication: ARTHRITIS
     Dosage: 50 MG
     Route: 048
  7. LORAZEPAM [Concomitant]
     Indication: TACHYCARDIA
     Dosage: 4 MG
     Route: 048
  8. TRAMADOL [Concomitant]
     Indication: OSTEOPOROSIS

REACTIONS (2)
  - HAIR TEXTURE ABNORMAL [None]
  - ALOPECIA [None]
